FAERS Safety Report 8203994-1 (Version None)
Quarter: 2012Q1

REPORT INFORMATION
  Report Type: 
  Country: None (occurrence: None)
  Receive Date: 20120313
  Receipt Date: 20120309
  Transmission Date: 20120608
  Serious: No
  Sender: FDA-Public Use
  Company Number: US-PFIZER INC-2012026067

PATIENT
  Sex: Male

DRUGS (2)
  1. SUTENT [Suspect]
     Dosage: UNK
     Dates: start: 20120309
  2. SUTENT [Suspect]
     Indication: RENAL CELL CARCINOMA
     Dosage: 50 MG, 1X/DAY, 2 CAPSULES DAILY, X 28 DAYS Q 42 DAYS
     Dates: start: 20120107

REACTIONS (6)
  - TONGUE DISORDER [None]
  - ORAL PAIN [None]
  - GLOSSODYNIA [None]
  - BLISTER [None]
  - HYPERTENSION [None]
  - TONGUE EXFOLIATION [None]
